FAERS Safety Report 21721613 (Version 2)
Quarter: 2022Q4

REPORT INFORMATION
  Report Type: Spontaneous
  Country: JP (occurrence: JP)
  Receive Date: 20221213
  Receipt Date: 20221226
  Transmission Date: 20230112
  Serious: Yes (Hospitalization, Other)
  Sender: FDA-Public Use
  Company Number: JP-Accord-290948

PATIENT
  Age: 81 Year
  Sex: Female
  Weight: 45 kg

DRUGS (2)
  1. ZOLEDRONIC ACID [Suspect]
     Active Substance: ZOLEDRONIC ACID
     Indication: Metastases to bone
  2. LETROZOLE [Concomitant]
     Active Substance: LETROZOLE
     Indication: Breast cancer metastatic

REACTIONS (8)
  - Fanconi syndrome [Recovered/Resolved]
  - Hypophosphataemic osteomalacia [Recovered/Resolved]
  - Bone demineralisation [Recovering/Resolving]
  - Renal impairment [Recovered/Resolved]
  - Blood 1,25-dihydroxycholecalciferol decreased [Recovering/Resolving]
  - Respiratory disorder [Recovering/Resolving]
  - Metabolic acidosis [Recovering/Resolving]
  - Spinal fracture [Unknown]
